FAERS Safety Report 8429712-X (Version None)
Quarter: 2012Q2

REPORT INFORMATION
  Report Type: 
  Country: None (occurrence: None)
  Receive Date: 20120612
  Receipt Date: 20120607
  Transmission Date: 20120825
  Serious: Yes (Other)
  Sender: FDA-Public Use
  Company Number: CN-ASTRAZENECA-2012SE37832

PATIENT

DRUGS (5)
  1. FENTANYL [Suspect]
     Indication: ANAESTHESIA
     Dosage: 3-5 MICROGRAM/KG
  2. VECURONIUM BROMIDE [Suspect]
     Indication: ANAESTHESIA
     Dosage: 0.1 MG/KG
  3. PROPOFOL [Suspect]
     Indication: ANAESTHESIA
     Dosage: 1-2 MG/KG
     Route: 042
  4. OMEPRAZOLE [Suspect]
     Indication: STRESS ULCER
     Route: 042
  5. MIDAZOLAM [Suspect]
     Indication: ANAESTHESIA
     Dosage: 0.075-0.1 MG/KG

REACTIONS (4)
  - POST PROCEDURAL DRAINAGE [None]
  - MELAENA [None]
  - HAEMATEMESIS [None]
  - ANAEMIA POSTOPERATIVE [None]
